FAERS Safety Report 7948696-1 (Version None)
Quarter: 2011Q4

REPORT INFORMATION
  Report Type: 
  Country: None (occurrence: None)
  Receive Date: 20111130
  Receipt Date: 20111130
  Transmission Date: 20120403
  Serious: Yes (Hospitalization)
  Sender: FDA-Public Use
  Company Number: None

PATIENT
  Sex: Female
  Weight: 70.6 kg

DRUGS (1)
  1. CYCLESSA [Suspect]
     Route: 048

REACTIONS (1)
  - ARTERIAL THROMBOSIS [None]
